FAERS Safety Report 16299143 (Version 5)
Quarter: 2019Q4

REPORT INFORMATION
  Report Type: Spontaneous
  Country: PL (occurrence: PL)
  Receive Date: 20190510
  Receipt Date: 20191025
  Transmission Date: 20200122
  Serious: Yes (Death, Hospitalization, Disabling, Other)
  Sender: FDA-Public Use
  Company Number: PL-ACCORD-126492

PATIENT
  Age: 64 Year
  Sex: Female

DRUGS (7)
  1. HEPARIN [Concomitant]
     Active Substance: HEPARIN SODIUM
     Indication: PROPHYLAXIS
     Dosage: PROPHYLACTIC DOSE
  2. DALTEPARIN [Concomitant]
     Active Substance: DALTEPARIN
     Dosage: (HEPARIN LOW MOLECULAR WEIGHT
  3. FUROSEMIDE. [Suspect]
     Active Substance: FUROSEMIDE
     Indication: SWELLING
     Dosage: PERIODICALLY, DOSE WAS INCREASED TO 60 MG/D (60 MG, QD)
  4. AMITRIPTYLINE [Interacting]
     Active Substance: AMITRIPTYLINE
     Indication: PSYCHOTIC DISORDER
     Dosage: 150 MG, QD (3 X 50 G)
  5. MORPHINE [Interacting]
     Active Substance: MORPHINE
     Indication: ANALGESIC THERAPY
     Dosage: 240 MG, QD
     Route: 048
  6. OLANZAPINE. [Interacting]
     Active Substance: OLANZAPINE
     Indication: PSYCHOTIC DISORDER
     Dosage: 10 MG (TAKEN BEFORE GOING TO SLEEP)
  7. FLUCONAZOLE. [Interacting]
     Active Substance: FLUCONAZOLE
     Indication: ORAL FUNGAL INFECTION
     Dosage: 200 MG, QD
     Route: 048

REACTIONS (7)
  - Nausea [Recovered/Resolved]
  - Confusional state [Fatal]
  - Pulmonary embolism [Fatal]
  - Somnolence [Fatal]
  - Oedema peripheral [Fatal]
  - Drug interaction [Fatal]
  - Cardiac arrest [Fatal]
